FAERS Safety Report 5647438-2 (Version None)
Quarter: 2008Q1

REPORT INFORMATION
  Report Type: 
  Country: None (occurrence: None)
  Receive Date: 20080303
  Receipt Date: 20080220
  Transmission Date: 20080703
  Serious: Yes (Hospitalization, Other)
  Sender: FDA-Public Use
  Company Number: US-SANOFI-SYNTHELABO-A03200504370

PATIENT
  Age: 59 Year
  Sex: Female

DRUGS (9)
  1. OXALPLATIN [Suspect]
     Indication: ADENOCARCINOMA
     Route: 042
  2. WARFARIN SODIUM [Concomitant]
     Route: 048
  3. CALCIUM [Concomitant]
     Route: 042
  4. MAGNESIUM [Concomitant]
     Route: 042
  5. GRANISETRON [Concomitant]
     Route: 042
  6. DEXAMETHASONE TAB [Concomitant]
     Route: 042
  7. BEVACIZUMAB [Suspect]
     Indication: ADENOCARCINOMA
     Route: 042
  8. LEUCOVORIN CALCIUM [Suspect]
     Indication: ADENOCARCINOMA
     Route: 042
  9. FLUOROURACIL [Suspect]
     Indication: ADENOCARCINOMA
     Dosage: BOLUS OF 400 MG/M2 FOLLOWED BY 2400 MG/M2 CONTINUOUS INFUSION OVER 46 HOURS
     Route: 042

REACTIONS (4)
  - BACK PAIN [None]
  - COOMBS POSITIVE HAEMOLYTIC ANAEMIA [None]
  - NEUTROPENIA [None]
  - WHITE BLOOD CELL COUNT INCREASED [None]
